FAERS Safety Report 4854950-2 (Version None)
Quarter: 2005Q4

REPORT INFORMATION
  Report Type: 
  Country: None (occurrence: None)
  Receive Date: 20051213
  Receipt Date: 20051130
  Transmission Date: 20060501
  Serious: Yes (Life-Threatening, Hospitalization)
  Sender: FDA-Public Use
  Company Number: 2005-134241-NL

PATIENT
  Age: 31 Year
  Sex: Female

DRUGS (4)
  1. MIRTAZAPINE [Suspect]
     Indication: DEPRESSION
     Dates: start: 20050101, end: 20051025
  2. CYANOCOBALAMIN-TANNIN COMPLEX [Concomitant]
  3. AMITRIPTYLINE HCL [Concomitant]
  4. TRIOBE [Concomitant]

REACTIONS (4)
  - BONE MARROW FAILURE [None]
  - NASOPHARYNGITIS [None]
  - PNEUMONIA [None]
  - SEPSIS [None]
